FAERS Safety Report 6884854-5 (Version None)
Quarter: 2010Q3

REPORT INFORMATION
  Report Type: 
  Country: None (occurrence: None)
  Receive Date: 20100729
  Receipt Date: 20070926
  Transmission Date: 20110219
  Serious: No
  Sender: FDA-Public Use
  Company Number: US-PFIZER INC-2007072073

PATIENT
  Sex: Male
  Weight: 81.65 kg

DRUGS (1)
  1. CELEBREX [Suspect]
     Indication: OSTEOARTHRITIS
     Route: 048

REACTIONS (1)
  - CREATININE RENAL CLEARANCE INCREASED [None]
